FAERS Safety Report 6182113-X (Version None)
Quarter: 2009Q2

REPORT INFORMATION
  Report Type: 
  Country: None (occurrence: None)
  Receive Date: 20090507
  Receipt Date: 20090428
  Transmission Date: 20091009
  Serious: Yes (Other)
  Sender: FDA-Public Use
  Company Number: CA-ELI_LILLY_AND_COMPANY-CA200904006893

PATIENT
  Age: 84 Year
  Sex: Female

DRUGS (14)
  1. FORTEO [Suspect]
     Indication: OSTEOPOROSIS
     Dosage: 20 UG, DAILY (1/D)
     Dates: start: 20081117
  2. PLAVIX [Concomitant]
  3. SOFLAX [Concomitant]
  4. LIPITOR [Concomitant]
  5. APO-RAMIPRIL [Concomitant]
  6. NOVOHYDRAZIDE [Concomitant]
  7. XALATAN [Concomitant]
     Route: 047
  8. TIMOLOL-POS [Concomitant]
     Route: 047
  9. LIQUIFILM [Concomitant]
     Route: 047
  10. NOVO-GESIC [Concomitant]
  11. MULTI-VITAMIN [Concomitant]
  12. CALCIUM [Concomitant]
  13. VITAMIN D [Concomitant]
  14. NOVAMOXIN [Concomitant]
     Indication: TOOTH DISORDER

REACTIONS (2)
  - FALL [None]
  - SYNCOPE [None]
